FAERS Safety Report 5715762-0 (Version None)
Quarter: 2008Q2

REPORT INFORMATION
  Report Type: 
  Country: None (occurrence: None)
  Receive Date: 20080423
  Receipt Date: 20080423
  Transmission Date: 20081010
  Serious: Yes (Other)
  Sender: FDA-Public Use
  Company Number: None

PATIENT
  Sex: Male
  Weight: 88.905 kg

DRUGS (2)
  1. METOPROLOL TARTRATE [Suspect]
     Indication: HEART RATE IRREGULAR
     Dosage: 100MG DAILY PO
     Route: 048
     Dates: start: 19990614, end: 20080422
  2. TOPROL-XL [Suspect]

REACTIONS (2)
  - TACHYCARDIA [None]
  - THERAPEUTIC RESPONSE UNEXPECTED WITH DRUG SUBSTITUTION [None]
